FAERS Safety Report 4680262-6 (Version None)
Quarter: 2005Q2

REPORT INFORMATION
  Report Type: 
  Country: None (occurrence: None)
  Receive Date: 20050525
  Receipt Date: 20050511
  Transmission Date: 20051028
  Serious: Yes (Hospitalization, Other)
  Sender: FDA-Public Use
  Company Number: 602066

PATIENT
  Age: 5 Year
  Sex: Male
  Weight: 17.5 kg

DRUGS (2)
  1. ADVATE [Suspect]
     Indication: PROPHYLAXIS
     Dosage: 1000 IU; QD; INTRAVENOUS
     Route: 042
     Dates: start: 20050203, end: 20050301
  2. ADVATE [Suspect]

REACTIONS (3)
  - FACTOR VIII INHIBITION [None]
  - HAEMORRHAGE [None]
  - RESPIRATORY TRACT HAEMORRHAGE [None]
